FAERS Safety Report 16266256 (Version 9)
Quarter: 2020Q3

REPORT INFORMATION
  Report Type: Report from Study
  Country: US (occurrence: US)
  Receive Date: 20190502
  Receipt Date: 20200824
  Transmission Date: 20201102
  Serious: Yes (Hospitalization, Other)
  Sender: FDA-Public Use
  Company Number: US-ACTELION-A-NJ2019-186674

PATIENT
  Age: 89 Year
  Sex: Female
  Weight: 71.2 kg

DRUGS (6)
  1. OPSUMIT [Suspect]
     Active Substance: MACITENTAN
     Dosage: 10 MG, QD
     Route: 048
  2. TADALAFIL. [Concomitant]
     Active Substance: TADALAFIL
  3. ELIQUIS [Concomitant]
     Active Substance: APIXABAN
  4. OPSUMIT [Suspect]
     Active Substance: MACITENTAN
     Indication: PULMONARY HYPERTENSION
     Dosage: 10 MG, QD
     Route: 048
  5. ADCIRCA [Concomitant]
     Active Substance: TADALAFIL
  6. OXYGEN. [Concomitant]
     Active Substance: OXYGEN
     Route: 045

REACTIONS (30)
  - Foot deformity [Unknown]
  - Dyspnoea [Unknown]
  - Oxygen saturation decreased [Unknown]
  - Oedema [Unknown]
  - Muscle spasms [Unknown]
  - Insomnia [Unknown]
  - Vena cava filter insertion [Unknown]
  - Tooth disorder [Unknown]
  - Nasal congestion [Unknown]
  - Weight fluctuation [Unknown]
  - Eye disorder [Unknown]
  - Urinary incontinence [Unknown]
  - Lip dry [Unknown]
  - Pulmonary arterial hypertension [Unknown]
  - Hypoaesthesia [Unknown]
  - Dyspnoea exertional [Unknown]
  - Unevaluable event [Unknown]
  - Rash [Not Recovered/Not Resolved]
  - Ankle operation [Unknown]
  - Fatigue [Unknown]
  - Foot operation [Unknown]
  - Pulmonary embolism [Unknown]
  - Vena cava filter removal [Unknown]
  - Rhinorrhoea [Unknown]
  - Nocturnal dyspnoea [Unknown]
  - Peripheral swelling [Unknown]
  - Condition aggravated [Unknown]
  - Hypersensitivity [Unknown]
  - Haemorrhoids [Unknown]
  - Pollakiuria [Unknown]

NARRATIVE: CASE EVENT DATE: 20190211
